FAERS Safety Report 5596006-X (Version None)
Quarter: 2007Q4

REPORT INFORMATION
  Report Type: 
  Country: None (occurrence: None)
  Receive Date: 20071218
  Receipt Date: 20070925
  Transmission Date: 20080405
  Serious: Yes (Hospitalization)
  Sender: FDA-Public Use
  Company Number: 2007080369

PATIENT
  Sex: Female
  Weight: 65.8 kg

DRUGS (1)
  1. BEXTRA [Suspect]
     Indication: ACCIDENT AT WORK
     Dosage: 20 MG (20 MG,1 IN 1 D)
     Dates: start: 20021205

REACTIONS (1)
  - MYOCARDIAL INFARCTION [None]
